FAERS Safety Report 4300871-3 (Version None)
Quarter: 2004Q1

REPORT INFORMATION
  Report Type: 
  Country: None (occurrence: None)
  Receive Date: 20040220
  Receipt Date: 20021014
  Transmission Date: 20041129
  Serious: Yes (Hospitalization, Other)
  Sender: FDA-Public Use
  Company Number: WAES 0210USA01512

PATIENT
  Age: 48 Year
  Sex: Female
  Weight: 63 kg

DRUGS (9)
  1. [THERAPY UNSPECIFIED] [Concomitant]
     Dates: end: 20001210
  2. ANTIMICROBIAL (UNSPECIFIED) [Concomitant]
  3. SOMA [Concomitant]
     Indication: BACK PAIN
  4. ESTROGENS (UNSPECIFIED) [Concomitant]
     Dates: start: 19991001, end: 20020801
  5. HERBS (UNSPECIFIED) [Concomitant]
     Dates: start: 20000101
  6. IMDUR [Concomitant]
     Indication: CHEST PAIN
     Dates: start: 20001201
  7. NITRO [Concomitant]
  8. VIOXX [Suspect]
     Indication: OSTEOARTHRITIS
     Route: 048
     Dates: start: 20000801, end: 20001201
  9. VIOXX [Suspect]
     Indication: JOINT STIFFNESS
     Route: 048
     Dates: start: 20000801, end: 20001201

REACTIONS (29)
  - ANAEMIA [None]
  - ANGINA PECTORIS [None]
  - ANXIETY [None]
  - BLOOD GLUCOSE INCREASED [None]
  - BLOOD PRESSURE DECREASED [None]
  - BRONCHITIS [None]
  - CHEST PAIN [None]
  - CONTUSION [None]
  - DEPRESSION [None]
  - DIZZINESS [None]
  - FALL [None]
  - GASTRIC HAEMORRHAGE [None]
  - GASTRITIS [None]
  - HAEMATOCHEZIA [None]
  - HAEMORRHOIDS [None]
  - HEART RATE IRREGULAR [None]
  - HIATUS HERNIA [None]
  - HYPERHIDROSIS [None]
  - INJURY [None]
  - LOSS OF CONSCIOUSNESS [None]
  - MIDDLE INSOMNIA [None]
  - NAUSEA [None]
  - PAIN IN EXTREMITY [None]
  - PALPITATIONS [None]
  - SYNCOPE [None]
  - TREMOR [None]
  - UPPER GASTROINTESTINAL HAEMORRHAGE [None]
  - URINARY TRACT INFECTION [None]
  - VIRAL INFECTION [None]
